FAERS Safety Report 12428650 (Version 1)
Quarter: 2016Q2

REPORT INFORMATION
  Report Type: Spontaneous
  Country: US (occurrence: None)
  Receive Date: 20160601
  Receipt Date: 20160601
  Transmission Date: 20160815
  Serious: Yes (Hospitalization)
  Sender: FDA-Public Use
  Company Number: None

PATIENT
  Age: 58 Year
  Sex: Male
  Weight: 72.6 kg

DRUGS (1)
  1. METFORMIN, 1000 MG AMNEAL [Suspect]
     Active Substance: METFORMIN HYDROCHLORIDE
     Indication: DIABETES MELLITUS
     Route: 048
     Dates: start: 20160530

REACTIONS (4)
  - Intestinal ischaemia [None]
  - Sepsis [None]
  - Contraindicated drug administered [None]
  - Lactic acidosis [None]

NARRATIVE: CASE EVENT DATE: 20160530
